FAERS Safety Report 8210580-6 (Version None)
Quarter: 2012Q1

REPORT INFORMATION
  Report Type: 
  Country: None (occurrence: None)
  Receive Date: 20120314
  Receipt Date: 20120215
  Transmission Date: 20120608
  Serious: No
  Sender: FDA-Public Use
  Company Number: US-ASTRAZENECA-2012SE10691

PATIENT
  Age: 50 Year
  Sex: Female
  Weight: 79.4 kg

DRUGS (3)
  1. TOPROL-XL [Suspect]
     Dosage: TOPROL XL 25 MG DAILY
     Route: 048
     Dates: start: 20080101
  2. TOPROL-XL [Suspect]
     Dosage: TOPROL ER 25 MG DAILY
     Route: 048
     Dates: start: 20120106
  3. TOPROL-XL [Suspect]
     Indication: TACHYCARDIA
     Dosage: TOPROL XL
     Route: 048
     Dates: start: 20051201

REACTIONS (5)
  - DIZZINESS [None]
  - PALPITATIONS [None]
  - FEELING ABNORMAL [None]
  - CHEST PAIN [None]
  - HYPERTENSION [None]
